FAERS Safety Report 4946150-2 (Version None)
Quarter: 2006Q1

REPORT INFORMATION
  Report Type: 
  Country: None (occurrence: None)
  Receive Date: 20060118
  Receipt Date: 20050222
  Transmission Date: 20060701
  Serious: Yes (Other)
  Sender: FDA-Public Use
  Company Number: BDI-006971

PATIENT
  Age: 69 Year
  Sex: Female
  Weight: 68 kg

DRUGS (6)
  1. PROHANCE [Suspect]
     Indication: CEREBROVASCULAR ACCIDENT
     Dosage: 10 ML ONCE IV
     Route: 042
     Dates: start: 20050220, end: 20050220
  2. PROHANCE [Suspect]
     Indication: GRAND MAL CONVULSION
     Dosage: 10 ML ONCE IV
     Route: 042
     Dates: start: 20050220, end: 20050220
  3. PROHANCE [Suspect]
     Indication: NUCLEAR MAGNETIC RESONANCE IMAGING BRAIN
     Dosage: 10 ML ONCE IV
     Route: 042
     Dates: start: 20050220, end: 20050220
  4. PROHANCE [Suspect]
     Indication: CEREBROVASCULAR ACCIDENT
     Dosage: 15 ML ONCE IV
     Route: 042
     Dates: start: 20050220, end: 20050220
  5. PROHANCE [Suspect]
     Indication: GRAND MAL CONVULSION
     Dosage: 15 ML ONCE IV
     Route: 042
     Dates: start: 20050220, end: 20050220
  6. PROHANCE [Suspect]
     Indication: NUCLEAR MAGNETIC RESONANCE IMAGING BRAIN
     Dosage: 15 ML ONCE IV
     Route: 042
     Dates: start: 20050220, end: 20050220

REACTIONS (3)
  - DYSPNOEA [None]
  - INJECTION SITE INFLAMMATION [None]
  - SWOLLEN TONGUE [None]
